FAERS Safety Report 4448747-5 (Version None)
Quarter: 2004Q3

REPORT INFORMATION
  Report Type: 
  Country: None (occurrence: None)
  Receive Date: 20040909
  Receipt Date: 20040909
  Transmission Date: 20050211
  Serious: Yes (Hospitalization)
  Sender: FDA-Public Use
  Company Number: None

PATIENT
  Age: 52 Year
  Sex: Female
  Weight: 48.9885 kg

DRUGS (1)
  1. SPIRIVA [Suspect]
     Indication: CHRONIC OBSTRUCTIVE AIRWAYS DISEASE

REACTIONS (7)
  - ANXIETY [None]
  - CONFUSIONAL STATE [None]
  - DRUG TOXICITY [None]
  - NERVOUS SYSTEM DISORDER [None]
  - PARANOIA [None]
  - TREMOR [None]
  - WEIGHT DECREASED [None]
